FAERS Safety Report 5047695-X (Version None)
Quarter: 2006Q3

REPORT INFORMATION
  Report Type: 
  Country: None (occurrence: None)
  Receive Date: 20060711
  Receipt Date: 20060627
  Transmission Date: 20061208
  Serious: Yes (Life-Threatening, Hospitalization)
  Sender: FDA-Public Use
  Company Number: PHBS2006JP09712

PATIENT
  Age: 33 Year
  Sex: Male
  Weight: 71 kg

DRUGS (2)
  1. LAMISIL [Suspect]
     Indication: TINEA PEDIS
     Dosage: 125 MG/D
     Route: 048
     Dates: start: 20060530, end: 20060603
  2. PEKIRON [Concomitant]
     Indication: TINEA PEDIS
     Route: 061
     Dates: start: 20060530, end: 20060605

REACTIONS (14)
  - ACUTE GENERALISED EXANTHEMATOUS PUSTULOSIS [None]
  - CANDIDIASIS [None]
  - DRUG ERUPTION [None]
  - GASTRIC DISORDER [None]
  - GENERALISED ERYTHEMA [None]
  - GENITAL PRURITUS MALE [None]
  - PIGMENTATION DISORDER [None]
  - PRURITUS [None]
  - PYREXIA [None]
  - RASH PUSTULAR [None]
  - SKIN ULCER [None]
  - TONSILLAR DISORDER [None]
  - TONSILLITIS [None]
  - TOXIC SKIN ERUPTION [None]
